FAERS Safety Report 26183606 (Version 1)
Quarter: 2025Q4

REPORT INFORMATION
  Report Type: Report from Study
  Country: US (occurrence: US)
  Receive Date: 20251221
  Receipt Date: 20251221
  Transmission Date: 20260119
  Serious: Yes (Death)
  Sender: JOHNSON AND JOHNSON
  Company Number: US-JNJFOC-20251225023

PATIENT
  Age: 68 Year
  Sex: Female

DRUGS (1)
  1. CILTACABTAGENE AUTOLEUCEL [Suspect]
     Active Substance: CILTACABTAGENE AUTOLEUCEL
     Indication: Plasma cell myeloma
     Dosage: THE ENTIRE VOLUME OF PRODUCT WAS INFUSED. THE TOTAL NUMBER OF CELLS ADMINISTERED WAS 53.41. THE TOTAL CELLS EXPONENT VALUE WAS 6

REACTIONS (2)
  - Neoplasm malignant [Fatal]
  - Plasma cell myeloma [Fatal]
